FAERS Safety Report 8997971 (Version 1)
Quarter: 2013Q1

REPORT INFORMATION
  Report Type: Spontaneous
  Country: JP (occurrence: JP)
  Receive Date: 20130104
  Receipt Date: 20130104
  Transmission Date: 20140127
  Serious: Yes (Death, Life-Threatening, Other)
  Sender: FDA-Public Use
  Company Number: JP-ROCHE-1147762

PATIENT
  Age: 56 Year
  Sex: Female
  Weight: 73 kg

DRUGS (4)
  1. HERCEPTIN [Suspect]
     Indication: BREAST CANCER
     Route: 041
     Dates: start: 20120515
  2. HERCEPTIN [Suspect]
     Indication: BREAST CANCER
     Route: 041
     Dates: start: 20120604
  3. VINORELBINE TARTRATE [Concomitant]
     Indication: BREAST CANCER METASTATIC
     Dosage: DOSAGE IS UNCERTAIN.
     Route: 041
     Dates: start: 2012
  4. VINORELBINE TARTRATE [Concomitant]
     Indication: BREAST CANCER
     Route: 041
     Dates: start: 20120604

REACTIONS (3)
  - Invasive ductal breast carcinoma [Fatal]
  - Tumour lysis syndrome [Not Recovered/Not Resolved]
  - Disseminated intravascular coagulation [Unknown]
